FAERS Safety Report 7543259-4 (Version None)
Quarter: 2011Q2

REPORT INFORMATION
  Report Type: 
  Country: None (occurrence: None)
  Receive Date: 20110525
  Receipt Date: 20110519
  Transmission Date: 20111010
  Serious: Yes (Other)
  Sender: FDA-Public Use
  Company Number: 2011028075

PATIENT
  Age: 55 Year
  Sex: Female
  Weight: 87.9978 kg

DRUGS (18)
  1. HIZENTRA [Suspect]
  2. PERCOCET [Concomitant]
  3. PRIMIDONE [Concomitant]
  4. SYNTHROID [Concomitant]
  5. HIZENTRA [Suspect]
     Indication: IMMUNODEFICIENCY COMMON VARIABLE
     Dosage: SEE IMAGE
     Route: 058
     Dates: start: 20100826
  6. HIZENTRA [Suspect]
     Indication: IMMUNODEFICIENCY COMMON VARIABLE
     Dosage: SEE IMAGE
     Route: 058
     Dates: start: 20110501
  7. HIZENTRA [Suspect]
     Indication: IMMUNODEFICIENCY COMMON VARIABLE
     Dosage: SEE IMAGE
     Route: 058
     Dates: start: 20110301
  8. HIZENTRA [Suspect]
     Indication: IMMUNODEFICIENCY COMMON VARIABLE
     Dosage: SEE IMAGE
     Route: 058
     Dates: start: 20110501
  9. PREVACID [Concomitant]
  10. HIZENTRA [Suspect]
  11. ALDARA (IMIQUIMOID) [Concomitant]
  12. HIZENTRA [Suspect]
  13. TRIAZOLAM [Concomitant]
  14. ZYRTEC [Concomitant]
  15. ONDANSETRON HCL (ONDANSETRON) [Concomitant]
  16. ZANTAC [Concomitant]
  17. L LYSINE (ACETYLLEUCINE LYSINE) [Concomitant]
  18. NORFLEX [Concomitant]

REACTIONS (3)
  - EAR INFECTION [None]
  - UPPER RESPIRATORY TRACT INFECTION [None]
  - CANDIDIASIS [None]
